FAERS Safety Report 9373754 (Version 3)
Quarter: 2013Q3

REPORT INFORMATION
  Report Type: Report from Study
  Country: JP (occurrence: JP)
  Receive Date: 20130628
  Receipt Date: 20130814
  Transmission Date: 20140515
  Serious: Yes (Hospitalization)
  Sender: FDA-Public Use
  Company Number: JP-PFIZER INC-2013189020

PATIENT
  Age: 46 Year
  Sex: Female
  Weight: 40.55 kg

DRUGS (23)
  1. SILDENAFIL CITRATE [Suspect]
     Indication: PULMONARY ARTERIAL HYPERTENSION
     Dosage: 5 MG, 1X/DAY
     Route: 048
     Dates: start: 20090511, end: 20090513
  2. SILDENAFIL CITRATE [Suspect]
     Dosage: 5 MG, 2X/DAY
     Route: 048
     Dates: start: 20090514, end: 20090517
  3. SILDENAFIL CITRATE [Suspect]
     Dosage: 5 MG, 3X/DAY
     Route: 048
     Dates: start: 20090518, end: 20090520
  4. SILDENAFIL CITRATE [Suspect]
     Dosage: 5 MG, 4X/DAY
     Route: 048
     Dates: start: 20090521, end: 20090525
  5. SILDENAFIL CITRATE [Suspect]
     Dosage: 2.5MG, 8X/DAY
     Route: 048
     Dates: start: 20090526, end: 20090531
  6. SILDENAFIL CITRATE [Suspect]
     Dosage: 3MG, 8X/DAY
     Route: 048
     Dates: start: 20090601, end: 20090603
  7. SILDENAFIL CITRATE [Suspect]
     Dosage: 3.5MG, 8X/DAY
     Route: 048
     Dates: start: 20090604, end: 20090617
  8. SILDENAFIL CITRATE [Suspect]
     Dosage: 3MG, 8X/DAY
     Route: 048
     Dates: start: 20090618, end: 20090621
  9. SILDENAFIL CITRATE [Suspect]
     Dosage: 2.5MG, 8X/DAY
     Route: 048
     Dates: start: 20090622
  10. FLORAN [Concomitant]
     Indication: PULMONARY HYPERTENSION
     Dosage: UNK
     Route: 042
  11. TRACLEER [Concomitant]
     Indication: PULMONARY HYPERTENSION
     Dosage: UNK
     Route: 048
  12. FLUITRAN [Concomitant]
     Indication: PULMONARY HYPERTENSION
     Dosage: UNK
     Route: 048
  13. THYRADIN S [Concomitant]
     Dosage: UNK
     Route: 048
  14. ALLOPURINOL [Concomitant]
     Dosage: UNK
     Route: 048
  15. HALFDIGOXIN [Concomitant]
     Dosage: UNK
     Route: 048
  16. LASIX [Concomitant]
     Dosage: UNK
     Route: 048
  17. GLUCONSAN K [Concomitant]
     Dosage: UNK
     Route: 048
     Dates: end: 20090518
  18. VASOLAN [Concomitant]
     Dosage: UNK
     Route: 048
  19. SPIRONOLACTONE [Concomitant]
     Dosage: UNK
     Route: 048
  20. WARFARIN [Concomitant]
     Indication: PULMONARY HYPERTENSION
     Dosage: UNK
     Route: 048
  21. FERROMIA [Concomitant]
     Dosage: UNK
     Route: 048
  22. SLOW-K [Concomitant]
     Dosage: UNK
     Route: 048
  23. OMEPRAL [Concomitant]
     Dosage: UNK
     Route: 048

REACTIONS (2)
  - Right ventricular failure [Recovering/Resolving]
  - Atrial tachycardia [Recovered/Resolved]
